FAERS Safety Report 23058153 (Version 2)
Quarter: 2023Q4

REPORT INFORMATION
  Report Type: Report from Study
  Country: CA (occurrence: CA)
  Receive Date: 20231012
  Receipt Date: 20231123
  Transmission Date: 20240109
  Serious: Yes (Death, Other)
  Sender: FDA-Public Use
  Company Number: CA-ABBVIE-5446439

PATIENT
  Sex: Female

DRUGS (1)
  1. SKYRIZI [Suspect]
     Active Substance: RISANKIZUMAB-RZAA
     Indication: Psoriasis
     Route: 058
     Dates: start: 20230214

REACTIONS (3)
  - Cardiac failure [Fatal]
  - Acute pulmonary oedema [Unknown]
  - Renal impairment [Fatal]

NARRATIVE: CASE EVENT DATE: 20230101
